FAERS Safety Report 15617929 (Version 1)
Quarter: 2018Q4

REPORT INFORMATION
  Report Type: Spontaneous
  Country: US (occurrence: US)
  Receive Date: 20181114
  Receipt Date: 20181114
  Transmission Date: 20190205
  Serious: No
  Sender: FDA-Public Use
  Company Number: US-GILEAD-2018-0372726

PATIENT
  Age: 44 Year
  Sex: Male

DRUGS (3)
  1. ACYCLOVIR [ACICLOVIR] [Concomitant]
     Active Substance: ACYCLOVIR
  2. VITAMIN D [Concomitant]
     Active Substance: CHOLECALCIFEROL
  3. TRUVADA [Suspect]
     Active Substance: EMTRICITABINE\TENOFOVIR DISOPROXIL FUMARATE
     Indication: PROPHYLAXIS AGAINST HIV INFECTION
     Dosage: UNK
     Route: 065
     Dates: start: 2015

REACTIONS (4)
  - Blood urine present [Unknown]
  - Chromaturia [Unknown]
  - Liver function test increased [Unknown]
  - Protein urine present [Unknown]
